FAERS Safety Report 19395863 (Version 1)
Quarter: 2021Q2

REPORT INFORMATION
  Report Type: Spontaneous
  Country: US (occurrence: US)
  Receive Date: 20210609
  Receipt Date: 20210609
  Transmission Date: 20210717
  Serious: No
  Sender: FDA-Public Use
  Company Number: US-GUERBET-US-20210037

PATIENT
  Age: 72 Year
  Sex: Male
  Weight: 114.6 kg

DRUGS (1)
  1. DOTAREM [Suspect]
     Active Substance: GADOTERATE MEGLUMINE
     Indication: MAGNETIC RESONANCE IMAGING HEAD
     Route: 042
     Dates: start: 20210203, end: 20210203

REACTIONS (3)
  - Nausea [Recovered/Resolved]
  - Cold sweat [Recovered/Resolved]
  - Flushing [Recovered/Resolved]

NARRATIVE: CASE EVENT DATE: 20210203
